FAERS Safety Report 17557909 (Version 1)
Quarter: 2020Q1

REPORT INFORMATION
  Report Type: Report from Study
  Country: None (occurrence: BR)
  Receive Date: 20200319
  Receipt Date: 20200319
  Transmission Date: 20200409
  Serious: Yes (Other)
  Sender: FDA-Public Use
  Company Number: BR-ABBVIE-20K-020-3325257-00

PATIENT
  Sex: Female
  Weight: 78 kg

DRUGS (1)
  1. HUMIRA [Suspect]
     Active Substance: ADALIMUMAB
     Indication: RHEUMATOID ARTHRITIS
     Dosage: ONE UNSPECIFIED DOSE
     Route: 058
     Dates: start: 20180710, end: 201911

REACTIONS (8)
  - Musculoskeletal stiffness [Recovering/Resolving]
  - Joint dislocation [Unknown]
  - Musculoskeletal disorder [Unknown]
  - Gait inability [Recovered/Resolved]
  - Pain [Unknown]
  - Mobility decreased [Unknown]
  - Joint swelling [Unknown]
  - Joint dislocation [Recovering/Resolving]

NARRATIVE: CASE EVENT DATE: 2020
